FAERS Safety Report 10189464 (Version 1)
Quarter: 2014Q2

REPORT INFORMATION
  Report Type: Spontaneous
  Country: CI (occurrence: CI)
  Receive Date: 20140522
  Receipt Date: 20140522
  Transmission Date: 20141212
  Serious: Yes (Hospitalization)
  Sender: FDA-Public Use
  Company Number: CI-PFIZER INC-2014139006

PATIENT
  Age: 34 Year
  Sex: Female

DRUGS (1)
  1. STEDIRIL [Suspect]
     Indication: OVARIAN DISORDER
     Dosage: UNK, 1X/DAY
     Route: 048

REACTIONS (3)
  - Headache [Recovered/Resolved]
  - Visual acuity reduced [Recovered/Resolved]
  - Off label use [Recovered/Resolved]
